FAERS Safety Report 22103774 (Version 2)
Quarter: 2023Q1

REPORT INFORMATION
  Report Type: Spontaneous
  Country: CN (occurrence: CN)
  Receive Date: 20230316
  Receipt Date: 20230320
  Transmission Date: 20230418
  Serious: Yes (Hospitalization, Other)
  Sender: FDA-Public Use
  Company Number: CN-009507513-2303CHN004771

PATIENT
  Age: 63 Year
  Sex: Male

DRUGS (2)
  1. CILASTATIN SODIUM\IMIPENEM [Suspect]
     Active Substance: CILASTATIN SODIUM\IMIPENEM
     Indication: Sepsis
     Dosage: 1G, Q12H
     Route: 041
     Dates: start: 20230208, end: 20230222
  2. SODIUM CHLORIDE [Concomitant]
     Active Substance: SODIUM CHLORIDE
     Dosage: 100ML,Q12H
     Route: 041
     Dates: start: 20230208, end: 20230222

REACTIONS (7)
  - Unresponsive to stimuli [Recovering/Resolving]
  - Staring [Recovering/Resolving]
  - Foaming at mouth [Recovering/Resolving]
  - Epilepsy [Unknown]
  - Seizure [Recovering/Resolving]
  - Blood glucose abnormal [Unknown]
  - Inappropriate schedule of product administration [Unknown]

NARRATIVE: CASE EVENT DATE: 20230208
